FAERS Safety Report 25444853 (Version 1)
Quarter: 2025Q2

REPORT INFORMATION
  Report Type: Report from Study
  Country: CH (occurrence: CH)
  Receive Date: 20250617
  Receipt Date: 20250617
  Transmission Date: 20250716
  Serious: Yes (Hospitalization, Other)
  Sender: CHEPLAPHARM
  Company Number: None

PATIENT
  Age: 25 Year
  Sex: Male
  Weight: 53 kg

DRUGS (10)
  1. OLANZAPINE [Suspect]
     Active Substance: OLANZAPINE
     Indication: Antipsychotic therapy
  2. OLANZAPINE [Suspect]
     Active Substance: OLANZAPINE
     Indication: Antipsychotic therapy
  3. RISPERIDONE [Suspect]
     Active Substance: RISPERIDONE
     Indication: Antipsychotic therapy
  4. VALPROATE SODIUM [Suspect]
     Active Substance: VALPROATE SODIUM
     Indication: Antipsychotic therapy
  5. LORAZEPAM [Suspect]
     Active Substance: LORAZEPAM
     Indication: Antipsychotic therapy
  6. CLOBAZAM [Interacting]
     Active Substance: CLOBAZAM
     Indication: Antipsychotic therapy
  7. LEVOMEPROMAZINE [Suspect]
     Active Substance: LEVOMEPROMAZINE
     Indication: Antipsychotic therapy
  8. ESOMEPRAZOLE [Interacting]
     Active Substance: ESOMEPRAZOLE
     Indication: Antipsychotic therapy
  9. CLONIDINE [Suspect]
     Active Substance: CLONIDINE
     Indication: Antipsychotic therapy
  10. TAMSULOSIN HYDROCHLORIDE [Suspect]
     Active Substance: TAMSULOSIN HYDROCHLORIDE
     Indication: Antipsychotic therapy
     Dosage: DAILY DOSE: 0.4 MILLIGRAM

REACTIONS (7)
  - Urinary incontinence [Recovered/Resolved]
  - Enuresis [Recovered/Resolved]
  - Urinary retention [Recovered/Resolved]
  - Injury [Unknown]
  - Self-destructive behaviour [Unknown]
  - Aggression [Unknown]
  - Blindness [Unknown]
